FAERS Safety Report 8895199 (Version 1)
Quarter: 2012Q4

REPORT INFORMATION
  Report Type: 
  Country: US (occurrence: US)
  Receive Date: 20121107
  Receipt Date: 20121107
  Transmission Date: 20130627
  Serious: No
  Sender: FDA-Public Use
  Company Number: US-AMGEN-USASP2011050776

PATIENT
  Age: 49 Year
  Sex: Female

DRUGS (9)
  1. ENBREL [Suspect]
     Indication: PRODUCT USED FOR UNKNOWN INDICATION
     Dosage: 50 mg, qwk
     Route: 058
  2. HYDROCHLOROTH [Concomitant]
     Dosage: 12.5 mg, UNK
     Route: 048
  3. METOPROLOL TARTATE HEXAL [Concomitant]
     Dosage: 25 mg, UNK
     Route: 048
  4. OMEPRAZOLE [Concomitant]
     Dosage: 10 mg, UNK
     Route: 048
  5. BUPROPION [Concomitant]
     Dosage: 75 mg, UNK
     Route: 048
  6. CALCIUM +VIT D [Concomitant]
     Route: 048
  7. MULTIVITAMIN                       /00097801/ [Concomitant]
     Route: 048
  8. FISH OIL [Concomitant]
     Route: 048
  9. VITAMIN D /00107901/ [Concomitant]
     Dosage: 1000 IU, UNK
     Route: 048

REACTIONS (4)
  - Injection site pain [Unknown]
  - Injection site reaction [Unknown]
  - Injection site erythema [Unknown]
  - Injection site swelling [Unknown]
